FAERS Safety Report 7682903-8 (Version None)
Quarter: 2011Q3

REPORT INFORMATION
  Report Type: 
  Country: None (occurrence: None)
  Receive Date: 20110815
  Receipt Date: 20110808
  Transmission Date: 20111222
  Serious: Yes (Other)
  Sender: FDA-Public Use
  Company Number: PHHY2010CA40659

PATIENT
  Sex: Female

DRUGS (1)
  1. ZOMETA [Suspect]
     Indication: METASTASES TO BONE
     Dosage: 3.5 MG, TIW
     Route: 042
     Dates: start: 20100618

REACTIONS (20)
  - BLOOD PRESSURE INCREASED [None]
  - MEAN PLATELET VOLUME DECREASED [None]
  - NEUTROPHIL COUNT INCREASED [None]
  - ALANINE AMINOTRANSFERASE INCREASED [None]
  - POLLAKIURIA [None]
  - JOINT STIFFNESS [None]
  - BLOOD LACTATE DEHYDROGENASE INCREASED [None]
  - BLOOD CHLORIDE DECREASED [None]
  - MEAN CELL HAEMOGLOBIN INCREASED [None]
  - PAIN IN JAW [None]
  - PAIN [None]
  - MIDDLE INSOMNIA [None]
  - URINARY TRACT INFECTION [None]
  - MALAISE [None]
  - DYSURIA [None]
  - APHAGIA [None]
  - ASPARTATE AMINOTRANSFERASE INCREASED [None]
  - BLOOD ALBUMIN DECREASED [None]
  - WHITE BLOOD CELL COUNT INCREASED [None]
  - DYSPNOEA [None]
